FAERS Safety Report 20884870 (Version 1)
Quarter: 2022Q2

REPORT INFORMATION
  Report Type: Spontaneous
  Country: MY (occurrence: MY)
  Receive Date: 20220527
  Receipt Date: 20220527
  Transmission Date: 20220720
  Serious: Yes (Other)
  Sender: FDA-Public Use
  Company Number: MY-SLATE RUN PHARMACEUTICALS-22MY001096

PATIENT

DRUGS (3)
  1. VANCOMYCIN HYDROCHLORIDE [Suspect]
     Active Substance: VANCOMYCIN HYDROCHLORIDE
     Indication: Staphylococcal infection
     Dosage: 650 MILLIGRAM, QD
     Route: 042
  2. VANCOMYCIN HYDROCHLORIDE [Suspect]
     Active Substance: VANCOMYCIN HYDROCHLORIDE
     Dosage: DOSE DEPENDING ON BIWEEKLY THERAPEUTIC DRUG MEASUREMENT
     Route: 042
  3. MEROPENEM [Concomitant]
     Active Substance: MEROPENEM
     Indication: Escherichia infection
     Dosage: 500 MILLIGRAM, BID
     Route: 042

REACTIONS (2)
  - Therapy non-responder [Recovered/Resolved]
  - Off label use [Recovered/Resolved]
